FAERS Safety Report 6687537-X (Version None)
Quarter: 2010Q2

REPORT INFORMATION
  Report Type: 
  Country: None (occurrence: None)
  Receive Date: 20100419
  Receipt Date: 20100121
  Transmission Date: 20101027
  Serious: No
  Sender: FDA-Public Use
  Company Number: US-ABBOTT-10P-163-0622045-00

PATIENT
  Sex: Female
  Weight: 42.222 kg

DRUGS (1)
  1. LUPRON DEPOT-PED [Suspect]
     Indication: DRUG USE FOR UNKNOWN INDICATION
     Route: 050
     Dates: start: 20100101, end: 20100101

REACTIONS (1)
  - INCORRECT DOSE ADMINISTERED [None]
